FAERS Safety Report 9149645 (Version 2)
Quarter: 2013Q3

REPORT INFORMATION
  Report Type: Report from Study
  Country: AT (occurrence: AT)
  Receive Date: 20130308
  Receipt Date: 20130906
  Transmission Date: 20140515
  Serious: Yes (Hospitalization)
  Sender: FDA-Public Use
  Company Number: AT-PFIZER INC-2013072843

PATIENT
  Age: 76 Year
  Sex: Male
  Weight: 95.7 kg

DRUGS (8)
  1. IRINOTECAN HCL [Suspect]
     Indication: COLORECTAL CANCER METASTATIC
     Dosage: 388 MG, CYCLIC, EVERY OTHER WEEK
     Route: 042
     Dates: start: 20110722
  2. CETUXIMAB [Suspect]
     Indication: COLORECTAL CANCER METASTATIC
     Dosage: 540 MG, WEEKLY
     Route: 042
     Dates: start: 20110722
  3. AGLANDIN [Concomitant]
     Dosage: 0.4 MG, 1X/DAY
     Route: 048
  4. FUROSEMID [Concomitant]
     Dosage: 5 MG, 1X/DAY
     Route: 048
  5. CO-DILATREND [Concomitant]
     Dosage: 12 MG, 1X/DAY
     Route: 048
  6. LISINOPRIL [Concomitant]
     Dosage: 10 MG, 1X/DAY
     Route: 048
  7. GLUCOPHAGE [Concomitant]
     Dosage: 500 MG, 1X/DAY
     Route: 048
  8. THYREX [Concomitant]
     Dosage: 100 UG, 1X/DAY
     Route: 048

REACTIONS (3)
  - Sinusitis [Recovered/Resolved]
  - Febrile infection [Recovered/Resolved]
  - Leukopenia [Recovered/Resolved]
